FAERS Safety Report 13374840 (Version 4)
Quarter: 2017Q3

REPORT INFORMATION
  Report Type: Spontaneous
  Country: US (occurrence: US)
  Receive Date: 20170327
  Receipt Date: 20170728
  Transmission Date: 20171127
  Serious: Yes (Death, Hospitalization)
  Sender: FDA-Public Use
  Company Number: US-VIFOR (INTERNATIONAL) INC.-VIT-2017-03105

PATIENT
  Age: 46 Year
  Sex: Male

DRUGS (24)
  1. COLESTYRAMINE [Concomitant]
     Active Substance: CHOLESTYRAMINE
  2. METOPROLOL TARTRATE. [Concomitant]
     Active Substance: METOPROLOL TARTRATE
  3. COLECALCIFEROL [Concomitant]
     Active Substance: CHOLECALCIFEROL
  4. HUMULIN N [Concomitant]
     Active Substance: INSULIN HUMAN
  5. NICOTINE. [Concomitant]
     Active Substance: NICOTINE
  6. TAMSULOSIN HYDROCHLORIDE. [Concomitant]
     Active Substance: TAMSULOSIN HYDROCHLORIDE
  7. CALCIUM ACETATE. [Concomitant]
     Active Substance: CALCIUM ACETATE
  8. HYDRALAZINE HYDROCHLORIDE. [Concomitant]
     Active Substance: HYDRALAZINE HYDROCHLORIDE
  9. IMODIUM A-D [Concomitant]
     Active Substance: LOPERAMIDE HYDROCHLORIDE
  10. TESSALON PEARLS [Concomitant]
  11. XANAX [Concomitant]
     Active Substance: ALPRAZOLAM
  12. CULTURELLE [Concomitant]
     Active Substance: LACTOBACILLUS RHAMNOSUS
  13. SALBUTAMOL SULFATE [Concomitant]
     Active Substance: ALBUTEROL SULFATE
  14. IRON [Concomitant]
     Active Substance: IRON
  15. FUROSEMIDE. [Concomitant]
     Active Substance: FUROSEMIDE
  16. LYRICA [Concomitant]
     Active Substance: PREGABALIN
  17. SODIUM BICARBONATE. [Concomitant]
     Active Substance: SODIUM BICARBONATE
  18. VELTASSA [Suspect]
     Active Substance: PATIROMER
     Indication: HYPERKALAEMIA
     Route: 048
     Dates: start: 20170214
  19. ISOSORBIDE DINITRATE. [Concomitant]
     Active Substance: ISOSORBIDE DINITRATE
  20. LEVEMIR [Concomitant]
     Active Substance: INSULIN DETEMIR
  21. LEVOFLOXACIN. [Concomitant]
     Active Substance: LEVOFLOXACIN
  22. MAGNESIUM OXIDE. [Concomitant]
     Active Substance: MAGNESIUM OXIDE
  23. CLARITIN [Concomitant]
     Active Substance: LORATADINE
  24. PARACETAMOL/HYDROCODONE [Concomitant]

REACTIONS (2)
  - Hospitalisation [Not Recovered/Not Resolved]
  - Death [Fatal]

NARRATIVE: CASE EVENT DATE: 201703
